FAERS Safety Report 7266991-9 (Version None)
Quarter: 2011Q1

REPORT INFORMATION
  Report Type: 
  Country: None (occurrence: None)
  Receive Date: 20110201
  Receipt Date: 20110124
  Transmission Date: 20110831
  Serious: Yes (Hospitalization, Other)
  Sender: FDA-Public Use
  Company Number: JP-ASTELLAS-2010JP007598

PATIENT
  Sex: Male
  Weight: 27.7 kg

DRUGS (8)
  1. PREDONINE [Suspect]
     Dosage: 4 MG, UID/QD
     Route: 048
     Dates: start: 20011016
  2. ASPIRIN [Concomitant]
     Dosage: 100 MG, UID/QD
     Route: 048
     Dates: start: 20100330
  3. EBASTINE [Concomitant]
     Dosage: 10 MG, UID/QD
     Route: 048
     Dates: start: 20101204
  4. PROGRAF [Suspect]
     Dosage: 3 MG, BID
     Route: 048
     Dates: start: 20100109
  5. BAKTAR [Concomitant]
     Dosage: 0.5 MG, BID
     Route: 048
     Dates: start: 20010830
  6. PROGRAF [Suspect]
     Indication: STEM CELL TRANSPLANT
     Dosage: 7 MG, UNKNOWN/D
     Route: 048
     Dates: start: 20020320, end: 20100108
  7. POLARAMINE [Concomitant]
     Dosage: 2 MG, BID
     Route: 048
     Dates: start: 20061014
  8. TALION [Concomitant]
     Dosage: 5 MG, BID
     Route: 048
     Dates: start: 20101204

REACTIONS (4)
  - HERPES ZOSTER [None]
  - MOYAMOYA DISEASE [None]
  - HAEMOLYSIS [None]
  - INFECTION [None]
